FAERS Safety Report 6999248-1 (Version None)
Quarter: 2010Q3

REPORT INFORMATION
  Report Type: 
  Country: None (occurrence: None)
  Receive Date: 20100920
  Receipt Date: 20100308
  Transmission Date: 20110219
  Serious: No
  Sender: FDA-Public Use
  Company Number: US-ASTRAZENECA-2010SE10217

PATIENT
  Sex: Male

DRUGS (1)
  1. SEROQUEL XR [Suspect]
     Indication: SLEEP DISORDER
     Route: 048

REACTIONS (3)
  - DRUG DOSE OMISSION [None]
  - INSOMNIA [None]
  - MALAISE [None]
